FAERS Safety Report 24677210 (Version 1)
Quarter: 2024Q4

REPORT INFORMATION
  Report Type: Spontaneous
  Country: US (occurrence: US)
  Receive Date: 20241129
  Receipt Date: 20241129
  Transmission Date: 20250115
  Serious: No
  Sender: JOHNSON AND JOHNSON
  Company Number: US-JNJFOC-20241118892

PATIENT
  Age: 26 Year
  Sex: Female

DRUGS (5)
  1. TYLENOL REGULAR STRENGTH [Suspect]
     Active Substance: ACETAMINOPHEN
     Indication: Headache
     Dosage: THREE TABLETS EVERY 6 HOUR
     Route: 048
  2. TREPROSTINIL [Concomitant]
     Active Substance: TREPROSTINIL
     Indication: Pulmonary arterial hypertension
     Dosage: UNK
     Dates: start: 202410
  3. TYVASO DPI [Concomitant]
     Active Substance: TREPROSTINIL
     Indication: Pulmonary arterial hypertension
     Dosage: 16 ?G
     Dates: start: 202410
  4. TYVASO DPI [Concomitant]
     Active Substance: TREPROSTINIL
     Dosage: 32 ?G
  5. TYVASO DPI [Concomitant]
     Active Substance: TREPROSTINIL
     Dosage: 48 ?G

REACTIONS (1)
  - Off label use [Unknown]
